FAERS Safety Report 19648852 (Version 1)
Quarter: 2021Q3

REPORT INFORMATION
  Report Type: Spontaneous
  Country: IT (occurrence: IT)
  Receive Date: 20210803
  Receipt Date: 20210803
  Transmission Date: 20211014
  Serious: Yes (Life-Threatening, Hospitalization)
  Sender: FDA-Public Use
  Company Number: IT-TEVA-2021-IT-1938043

PATIENT
  Age: 80 Year
  Sex: Male

DRUGS (6)
  1. FLUOROURACIL. [Suspect]
     Active Substance: FLUOROURACIL
     Indication: METASTASES TO LIVER
     Dosage: 46 HOUR OF CONTINUOUS INFUSION THROUGH PORT?A?CATH, EVERY 2 WEEKS
     Route: 050
  2. FLUOROURACIL. [Suspect]
     Active Substance: FLUOROURACIL
     Indication: COLORECTAL CANCER STAGE IV
     Dosage: IN?HOSPITAL BOLUS
     Route: 050
  3. OXALIPLATIN. [Suspect]
     Active Substance: OXALIPLATIN
     Indication: COLORECTAL CANCER STAGE IV
     Dosage: IN?HOSPITAL BOLUS
     Route: 050
  4. LEUCOVORIN. [Concomitant]
     Active Substance: LEUCOVORIN
     Indication: COLORECTAL CANCER STAGE IV
     Dosage: IN?HOSPITAL BOLUS
     Route: 050
  5. OXALIPLATIN. [Suspect]
     Active Substance: OXALIPLATIN
     Indication: METASTASES TO LIVER
     Dosage: 46 HOUR OF CONTINUOUS INFUSION THROUGH PORT?A?CATH, EVERY 2 WEEKS
     Route: 050
  6. LEUCOVORIN. [Concomitant]
     Active Substance: LEUCOVORIN
     Indication: METASTASES TO LIVER
     Dosage: 46 HOUR OF CONTINUOUS INFUSION THROUGH PORT?A?CATH, EVERY 2 WEEKS
     Route: 050

REACTIONS (1)
  - Cardiotoxicity [Recovered/Resolved]
